FAERS Safety Report 8352070-6 (Version None)
Quarter: 2012Q2

REPORT INFORMATION
  Report Type: 
  Country: None (occurrence: None)
  Receive Date: 20120509
  Receipt Date: 20120509
  Transmission Date: 20120825
  Serious: No
  Sender: FDA-Public Use
  Company Number: None

PATIENT
  Age: 58 Year
  Sex: Female
  Weight: 65.7716 kg

DRUGS (1)
  1. IBANDRONATE SODIUM [Suspect]
     Indication: OSTEOPOROSIS
     Dosage: 150 MG ONCE A MONTH PO
     Route: 048
     Dates: start: 20120402, end: 20120402

REACTIONS (2)
  - TENDONITIS [None]
  - PRODUCT SUBSTITUTION ISSUE [None]
